FAERS Safety Report 8984650 (Version 1)
Quarter: 2012Q4

REPORT INFORMATION
  Report Type: 
  Country: US (occurrence: US)
  Receive Date: 20121225
  Receipt Date: 20121225
  Transmission Date: 20130627
  Serious: No
  Sender: FDA-Public Use
  Company Number: US-ASTRAZENECA-2012SE92318

PATIENT
  Sex: Female

DRUGS (2)
  1. SYMBICORT PMDI [Suspect]
     Dosage: DAILY
     Route: 055
  2. SYMBICORT PMDI [Suspect]
     Dosage: ONLY WHEN SHE GETS TIRED
     Route: 055

REACTIONS (3)
  - Fatigue [Unknown]
  - Dyspnoea [Unknown]
  - Intentional drug misuse [Unknown]
